FAERS Safety Report 8247024-4 (Version None)
Quarter: 2012Q1

REPORT INFORMATION
  Report Type: 
  Country: None (occurrence: None)
  Receive Date: 20120316
  Receipt Date: 20090428
  Transmission Date: 20120608
  Serious: Yes (Other)
  Sender: FDA-Public Use
  Company Number: PHEH2009US01591

PATIENT
  Age: 53 Year
  Sex: Male
  Weight: 149.7 kg

DRUGS (1)
  1. TEKTURNA [Suspect]
     Indication: HYPERTENSION
     Dosage: 300 MG, QD, ORAL
     Route: 048
     Dates: start: 20081111, end: 20090123

REACTIONS (6)
  - HYPERSENSITIVITY [None]
  - DYSPHAGIA [None]
  - LIP SWELLING [None]
  - APHONIA [None]
  - SWELLING FACE [None]
  - TONGUE OEDEMA [None]
